FAERS Safety Report 23499627 (Version 2)
Quarter: 2024Q1

REPORT INFORMATION
  Report Type: Report from Study
  Country: US (occurrence: US)
  Receive Date: 20240208
  Receipt Date: 20240228
  Transmission Date: 20240409
  Serious: Yes (Death, Hospitalization, Other)
  Sender: FDA-Public Use
  Company Number: US-009507513-2402USA002581

PATIENT
  Age: 82 Year
  Sex: Male

DRUGS (9)
  1. KEYTRUDA [Suspect]
     Active Substance: PEMBROLIZUMAB
     Indication: Prostate cancer
     Dosage: 200 MILLIGRAM, EVERY 21 DAYS (Q3W)
     Route: 042
     Dates: start: 20231031, end: 20231031
  2. IRON [Concomitant]
     Active Substance: IRON
  3. ERLEADA [Concomitant]
     Active Substance: APALUTAMIDE
  4. DICLOFENAC [Concomitant]
     Active Substance: DICLOFENAC
  5. BICALUTAMIDE [Concomitant]
     Active Substance: BICALUTAMIDE
  6. HYDROCODONE [Concomitant]
     Active Substance: HYDROCODONE
     Dosage: STRENGTH: 5/325 MG
  7. TAMSULOSIN [Concomitant]
     Active Substance: TAMSULOSIN
  8. PRAVASTATIN [Concomitant]
     Active Substance: PRAVASTATIN
  9. AMLODIPINE [Concomitant]
     Active Substance: AMLODIPINE BESYLATE

REACTIONS (5)
  - Death [Fatal]
  - Dyspnoea [Not Recovered/Not Resolved]
  - Tremor [Not Recovered/Not Resolved]
  - General physical condition abnormal [Not Recovered/Not Resolved]
  - Pallor [Not Recovered/Not Resolved]

NARRATIVE: CASE EVENT DATE: 20231121
